FAERS Safety Report 21638611 (Version 3)
Quarter: 2023Q2

REPORT INFORMATION
  Report Type: Report from Study
  Country: US (occurrence: US)
  Receive Date: 20221124
  Receipt Date: 20230404
  Transmission Date: 20230721
  Serious: No
  Sender: FDA-Public Use
  Company Number: US-ABBVIE-4178471

PATIENT
  Age: 37 Year
  Sex: Male

DRUGS (2)
  1. SKYRIZI [Suspect]
     Active Substance: RISANKIZUMAB-RZAA
     Indication: Psoriasis
     Dosage: WEEK 0
     Route: 058
     Dates: start: 202207, end: 202207
  2. SKYRIZI [Suspect]
     Active Substance: RISANKIZUMAB-RZAA
     Dosage: FORM STRENGTH: 150 MG?SKYRIZI  WEEK 4 THEN EVERY 12 WEEKS.?START DATE 2022
     Route: 058
     Dates: start: 202210

REACTIONS (8)
  - Illness [Unknown]
  - Pain [Not Recovered/Not Resolved]
  - Bronchitis [Unknown]
  - Psoriasis [Unknown]
  - Fungal infection [Unknown]
  - Device issue [Unknown]
  - Injection site bruising [Unknown]
  - Drug ineffective [Unknown]

NARRATIVE: CASE EVENT DATE: 20221001
